FAERS Safety Report 5679001-1 (Version None)
Quarter: 2008Q1

REPORT INFORMATION
  Report Type: 
  Country: None (occurrence: None)
  Receive Date: 20080325
  Receipt Date: 20080317
  Transmission Date: 20080703
  Serious: Yes (Death)
  Sender: FDA-Public Use
  Company Number: A0717135A

PATIENT
  Age: 34 Year
  Sex: Male

DRUGS (9)
  1. WELLBUTRIN XL [Suspect]
     Indication: DEPRESSION
     Route: 048
     Dates: end: 20080101
  2. OXYMORPHONE HCL [Suspect]
     Dosage: 20MG TWICE PER DAY
     Route: 048
     Dates: start: 20071101, end: 20080101
  3. CLONAZEPAM [Suspect]
     Indication: ANXIETY
     Dosage: 1MG THREE TIMES PER DAY
     Route: 048
     Dates: end: 20080101
  4. MICARDIS [Suspect]
     Indication: HYPERTENSION
     Route: 048
     Dates: end: 20080101
  5. BACLOFEN [Suspect]
     Indication: DRUG USE FOR UNKNOWN INDICATION
     Dosage: 2TAB TWICE PER DAY
     Route: 048
     Dates: end: 20080101
  6. CYCLOBENZAPRINE HCL [Suspect]
     Indication: DRUG USE FOR UNKNOWN INDICATION
     Route: 048
     Dates: end: 20080101
  7. ROZEREM [Suspect]
     Dates: end: 20080101
  8. AMITRIPTYLINE HCL [Suspect]
     Dosage: 2TAB AT NIGHT
     Route: 048
     Dates: end: 20080101
  9. OXYCODONE HCL [Suspect]
     Route: 048
     Dates: end: 20080101

REACTIONS (2)
  - DEPRESSED LEVEL OF CONSCIOUSNESS [None]
  - DRUG TOXICITY [None]
